FAERS Safety Report 17564568 (Version 1)
Quarter: 2020Q1

REPORT INFORMATION
  Report Type: Spontaneous
  Country: US (occurrence: US)
  Receive Date: 20200320
  Receipt Date: 20200320
  Transmission Date: 20200409
  Serious: No
  Sender: FDA-Public Use
  Company Number: US-KARYOPHARM-2020KPT000051

PATIENT

DRUGS (3)
  1. WARFARIN SODIUM. [Concomitant]
     Active Substance: WARFARIN SODIUM
     Indication: PRODUCT USED FOR UNKNOWN INDICATION
  2. XPOVIO [Suspect]
     Active Substance: SELINEXOR
     Indication: PLASMA CELL MYELOMA
     Dosage: 100 MG, WEEKLY
     Route: 048
     Dates: start: 20200113, end: 20200213
  3. DEXAMETHASONE. [Concomitant]
     Active Substance: DEXAMETHASONE
     Indication: NAUSEA

REACTIONS (10)
  - Nasopharyngitis [Unknown]
  - Hot flush [Unknown]
  - Dizziness [Unknown]
  - Nausea [Unknown]
  - Decreased appetite [Unknown]
  - Leukopenia [Unknown]
  - Anaemia [Unknown]
  - Bursitis [Unknown]
  - Thrombocytopenia [Unknown]
  - Neutropenia [Unknown]

NARRATIVE: CASE EVENT DATE: 2020
